FAERS Safety Report 18223771 (Version 2)
Quarter: 2020Q4

REPORT INFORMATION
  Report Type: Spontaneous
  Country: US (occurrence: US)
  Receive Date: 20200902
  Receipt Date: 20201013
  Transmission Date: 20210113
  Serious: Yes (Hospitalization)
  Sender: FDA-Public Use
  Company Number: US-ASTRAZENECA-2020SF08542

PATIENT
  Age: 991 Month
  Sex: Male
  Weight: 99.8 kg

DRUGS (11)
  1. SYMBICORT [Suspect]
     Active Substance: BUDESONIDE\FORMOTEROL FUMARATE DIHYDRATE
     Indication: RESPIRATORY DISORDER
     Dosage: 160/4.5 MCG 2 PUFFS TWO TIMES A DAY
     Route: 055
  2. SYMBICORT [Suspect]
     Active Substance: BUDESONIDE\FORMOTEROL FUMARATE DIHYDRATE
     Indication: CHRONIC OBSTRUCTIVE PULMONARY DISEASE
     Dosage: 160/4.5 MCG 2 PUFFS TWO TIMES A DAY
     Route: 055
  3. METOPROLOL UNKNOWN [Suspect]
     Active Substance: METOPROLOL
     Dosage: HE TAKES A HALF EACH DAY
     Route: 065
  4. FUROSEMIDE. [Concomitant]
     Active Substance: FUROSEMIDE
     Dosage: HE TAKES ONE AND HALF EACH DAY
  5. GABAPENTIN. [Concomitant]
     Active Substance: GABAPENTIN
     Indication: NEUROPATHY PERIPHERAL
  6. AZITHROMYCIN ANHYDROUS. [Concomitant]
     Active Substance: AZITHROMYCIN ANHYDROUS
     Dosage: HE TAKES THIS ON MONDAY, WEDNESDAY AND FRIDAY
  7. TAMSULOSIN [Concomitant]
     Active Substance: TAMSULOSIN
  8. MULTIVITAMIN [Concomitant]
     Active Substance: VITAMINS
  9. SYMBICORT [Suspect]
     Active Substance: BUDESONIDE\FORMOTEROL FUMARATE DIHYDRATE
     Indication: HYPERTENSIVE HEART DISEASE
     Dosage: 160/4.5 MCG 2 PUFFS TWO TIMES A DAY
     Route: 055
  10. VITAMIN D [Concomitant]
     Active Substance: VITAMIN D NOS
  11. WARFARIN [Concomitant]
     Active Substance: WARFARIN
     Dosage: ON MONDAY , WEDNESDAY AND FRIDAY HE TAKES A WHOLE PILL AND ON THE OTHER DAYS HE TAKES A HALF A PILL

REACTIONS (7)
  - Chronic obstructive pulmonary disease [Unknown]
  - Body height decreased [Unknown]
  - Neuropathy peripheral [Not Recovered/Not Resolved]
  - Incorrect dose administered [Unknown]
  - Off label use [Unknown]
  - Device issue [Unknown]
  - Drug delivery system malfunction [Unknown]

NARRATIVE: CASE EVENT DATE: 202008
